FAERS Safety Report 25449004 (Version 2)
Quarter: 2025Q3

REPORT INFORMATION
  Report Type: Report from Study
  Country: US (occurrence: US)
  Receive Date: 20250618
  Receipt Date: 20250802
  Transmission Date: 20251021
  Serious: Yes (Other)
  Sender: ALEXION PHARMACEUTICALS
  Company Number: US-AstraZeneca-CH-00891818A

PATIENT
  Sex: Male
  Weight: 71 kg

DRUGS (20)
  1. ACALABRUTINIB [Suspect]
     Active Substance: ACALABRUTINIB
     Indication: Chronic lymphocytic leukaemia
     Dosage: 100 MILLIGRAM, QD
     Dates: start: 20230922
  2. ACYCLOVIR [Concomitant]
     Active Substance: ACYCLOVIR
     Route: 065
  3. ALLOPURINOL [Concomitant]
     Active Substance: ALLOPURINOL
     Route: 065
  4. AMIODARONE [Concomitant]
     Active Substance: AMIODARONE
     Route: 065
  5. BUSPIRONE [Concomitant]
     Active Substance: BUSPIRONE HYDROCHLORIDE
     Route: 065
  6. CLARITIN [Concomitant]
     Active Substance: LORATADINE
     Route: 065
  7. ELIQUIS [Concomitant]
     Active Substance: APIXABAN
     Route: 065
  8. FENOFIBRATE [Concomitant]
     Active Substance: FENOFIBRATE
     Route: 065
  9. FLUCONAZOLE [Concomitant]
     Active Substance: FLUCONAZOLE
     Route: 065
  10. GLIPIZIDE [Concomitant]
     Active Substance: GLIPIZIDE
     Route: 065
  11. JARDIANCE [Concomitant]
     Active Substance: EMPAGLIFLOZIN
     Route: 065
  12. MELOXICAM [Concomitant]
     Active Substance: MELOXICAM
     Route: 065
  13. METFORMIN [Concomitant]
     Active Substance: METFORMIN HYDROCHLORIDE
     Route: 065
  14. ODOMZO [Concomitant]
     Active Substance: SONIDEGIB
     Route: 065
  15. OLMESARTAN [Concomitant]
     Active Substance: OLMESARTAN
     Route: 065
  16. OZEMPIC [Concomitant]
     Active Substance: SEMAGLUTIDE
     Route: 065
  17. PANTOPRAZOLE [Concomitant]
     Active Substance: PANTOPRAZOLE
     Route: 065
  18. PIOGLITAZONE [Concomitant]
     Active Substance: PIOGLITAZONE
     Route: 065
  19. SULFAMETHOXAZOLE [Concomitant]
     Active Substance: SULFAMETHOXAZOLE
     Route: 065
  20. TRAZODONE [Concomitant]
     Active Substance: TRAZODONE HYDROCHLORIDE
     Route: 065

REACTIONS (1)
  - Pancreatitis [Unknown]
